FAERS Safety Report 4889842-6 (Version None)
Quarter: 2006Q1

REPORT INFORMATION
  Report Type: 
  Country: None (occurrence: None)
  Receive Date: 20060124
  Receipt Date: 20051005
  Transmission Date: 20060701
  Serious: Yes (Hospitalization, Disabling)
  Sender: FDA-Public Use
  Company Number: US-MERCK-0510USA05566

PATIENT
  Age: 62 Year
  Sex: Male
  Weight: 84 kg

DRUGS (5)
  1. VIOXX [Suspect]
     Indication: BACK INJURY
     Route: 048
     Dates: start: 20030908, end: 20031101
  2. HYTRIN [Concomitant]
     Route: 048
  3. DYAZIDE [Concomitant]
     Route: 048
  4. CLONIDINE [Concomitant]
     Route: 048
  5. ALBUTEROL [Concomitant]
     Route: 055

REACTIONS (2)
  - CHEST PAIN [None]
  - CORONARY ARTERY DISEASE [None]
